FAERS Safety Report 14813944 (Version 1)
Quarter: 2018Q2

REPORT INFORMATION
  Report Type: Spontaneous
  Country: FR (occurrence: FR)
  Receive Date: 20180426
  Receipt Date: 20180426
  Transmission Date: 20180711
  Serious: Yes (Other)
  Sender: FDA-Public Use
  Company Number: FR-MERCK KGAA-2046581

PATIENT
  Age: 66 Year
  Sex: Female

DRUGS (1)
  1. NOVOTHYROX [Suspect]
     Active Substance: LEVOTHYROXINE SODIUM
     Indication: AUTOIMMUNE THYROIDITIS
     Dates: start: 201703

REACTIONS (18)
  - Fatigue [Not Recovered/Not Resolved]
  - Myalgia [None]
  - Condition aggravated [None]
  - Hypokinesia [None]
  - Personal relationship issue [None]
  - Hyperthyroidism [Not Recovered/Not Resolved]
  - Poor quality sleep [None]
  - Suicidal ideation [None]
  - Hot flush [None]
  - Decreased interest [None]
  - Social avoidant behaviour [None]
  - Insomnia [None]
  - Arthralgia [Not Recovered/Not Resolved]
  - Asthenia [None]
  - Pain [None]
  - Mean cell volume increased [None]
  - Psychomotor hyperactivity [None]
  - Blood thyroid stimulating hormone decreased [None]

NARRATIVE: CASE EVENT DATE: 201708
